FAERS Safety Report 6389815-0 (Version None)
Quarter: 2009Q4

REPORT INFORMATION
  Report Type: 
  Country: None (occurrence: None)
  Receive Date: 20091003
  Receipt Date: 20090929
  Transmission Date: 20100525
  Serious: Yes (Hospitalization)
  Sender: FDA-Public Use
  Company Number: SP01644

PATIENT
  Age: 53 Year
  Sex: Female
  Weight: 83.9154 kg

DRUGS (3)
  1. OSMOPREP [Suspect]
     Indication: BOWEL PREPARATION
     Dosage: 32 TBLETS IN ONE DAY, ORAL
     Route: 048
     Dates: start: 20070814, end: 20070814
  2. OSMOPREP [Suspect]
     Indication: COLONOSCOPY
     Dosage: 32 TBLETS IN ONE DAY, ORAL
     Route: 048
     Dates: start: 20070814, end: 20070814
  3. BISACODYL [Concomitant]

REACTIONS (10)
  - ASTHENIA [None]
  - BLOOD THYROID STIMULATING HORMONE INCREASED [None]
  - DEHYDRATION [None]
  - DRUG TOXICITY [None]
  - HYPERHIDROSIS [None]
  - HYPOTENSION [None]
  - RENAL FAILURE ACUTE [None]
  - RENAL FAILURE CHRONIC [None]
  - SOMNOLENCE [None]
  - SYNCOPE [None]
